FAERS Safety Report 4359965-9 (Version None)
Quarter: 2004Q2

REPORT INFORMATION
  Report Type: 
  Country: None (occurrence: None)
  Receive Date: 20040513
  Receipt Date: 20040504
  Transmission Date: 20050107
  Serious: Yes (Life-Threatening, Hospitalization)
  Sender: FDA-Public Use
  Company Number: 2004-05-0049

PATIENT
  Age: 45 Year
  Sex: Male
  Weight: 70 kg

DRUGS (10)
  1. REBETOL [Suspect]
     Indication: HEPATITIS C
     Dosage: ORAL
     Route: 048
     Dates: start: 20031015, end: 20031201
  2. INTERFERON ALFA-2B [Suspect]
     Indication: HEPATITIS C
     Dosage: SUBCUTANEOUS
     Route: 058
     Dates: start: 19980101
  3. PEG-INTERFERON [Suspect]
     Indication: HEPATITIS C
     Dates: start: 20031015, end: 20031201
  4. EPIVIR [Suspect]
     Indication: HIV INFECTION
     Dosage: ORAL
     Route: 048
     Dates: start: 20020101
  5. . [Concomitant]
  6. ZERIT [Suspect]
     Indication: HIV INFECTION
     Dosage: ORAL
     Route: 048
     Dates: start: 20020615, end: 20040404
  7. . [Concomitant]
  8. VIREAD [Suspect]
     Indication: HIV INFECTION
     Dosage: ORAL
     Route: 048
     Dates: start: 20020615, end: 20040404
  9. . [Concomitant]
  10. AMANTADINE HCL [Concomitant]

REACTIONS (18)
  - ABNORMAL BEHAVIOUR [None]
  - ASCITES [None]
  - ASTERIXIS [None]
  - CANDIDIASIS [None]
  - COAGULATION FACTOR V LEVEL DECREASED [None]
  - CONDITION AGGRAVATED [None]
  - DIABETES MELLITUS [None]
  - DIARRHOEA [None]
  - DRUG TOXICITY [None]
  - ESCHERICHIA SEPSIS [None]
  - HEPATIC ENCEPHALOPATHY [None]
  - HEPATIC FAILURE [None]
  - INSULIN RESISTANCE [None]
  - LACTIC ACIDOSIS [None]
  - PORTAL HYPERTENSION [None]
  - PROTHROMBIN TIME PROLONGED [None]
  - VARICES OESOPHAGEAL [None]
  - WEIGHT DECREASED [None]
